FAERS Safety Report 10305801 (Version 3)
Quarter: 2014Q3

REPORT INFORMATION
  Report Type: Spontaneous
  Country: IT (occurrence: IT)
  Receive Date: 20140715
  Receipt Date: 20140902
  Transmission Date: 20150326
  Serious: Yes (Other)
  Sender: FDA-Public Use
  Company Number: IT-009507513-1407ITA005447

PATIENT
  Age: 51 Year
  Sex: Male
  Weight: 77 kg

DRUGS (6)
  1. PEGASYS [Interacting]
     Active Substance: PEGINTERFERON ALFA-2A
     Indication: CHRONIC HEPATITIS C
     Dosage: 180 MICROGRAM WEEKLY, FORMULATION: INJECTABLE SOLUTION
     Route: 030
     Dates: start: 20140130, end: 20140522
  2. TELAPREVIR [Interacting]
     Active Substance: TELAPREVIR
     Indication: CHRONIC HEPATITIS C
     Dosage: 2250 MG DAILY: TOTAL DAILY DOSE
     Route: 048
     Dates: start: 20140307, end: 20140517
  3. REBETOL [Suspect]
     Active Substance: RIBAVIRIN
     Indication: CHRONIC HEPATITIS C
     Dosage: 1000MG DAILY
     Route: 048
     Dates: start: 20140130, end: 20140406
  4. REBETOL [Interacting]
     Active Substance: RIBAVIRIN
     Dosage: 800MG DAILY
     Route: 048
     Dates: start: 20140407, end: 20140512
  5. REBETOL [Interacting]
     Active Substance: RIBAVIRIN
     Dosage: 600MG DAILY
     Route: 048
     Dates: start: 20140513, end: 20140521
  6. TRIATEC (RAMIPRIL) [Concomitant]
     Active Substance: RAMIPRIL
     Dosage: 2.5 MG, DAILY

REACTIONS (1)
  - Rash maculo-papular [Recovering/Resolving]

NARRATIVE: CASE EVENT DATE: 20140513
